FAERS Safety Report 17402758 (Version 1)
Quarter: 2020Q1

REPORT INFORMATION
  Report Type: Spontaneous
  Country: US (occurrence: US)
  Receive Date: 20200211
  Receipt Date: 20200211
  Transmission Date: 20200409
  Serious: Yes (Life-Threatening, Hospitalization)
  Sender: FDA-Public Use
  Company Number: US-MYLANLABS-2020M1015656

PATIENT
  Age: 56 Year
  Sex: Female

DRUGS (4)
  1. ESTROGEN [Suspect]
     Active Substance: ESTROGENS
     Indication: HORMONE REPLACEMENT THERAPY
     Dosage: HIGH-DOSE OF ESTROGEN ADMINITERED
     Route: 065
  2. VERAPAMIL [Suspect]
     Active Substance: VERAPAMIL HYDROCHLORIDE
     Indication: CEREBRAL VASOCONSTRICTION
     Route: 013
  3. KEPPRA [Concomitant]
     Active Substance: LEVETIRACETAM
     Indication: SEIZURE
     Dosage: 1 GRAM, BID
     Route: 065
  4. ESCITALOPRAM [Suspect]
     Active Substance: ESCITALOPRAM OXALATE
     Indication: DEPRESSION
     Dosage: 20 MILLIGRAM, QD
     Route: 065

REACTIONS (4)
  - Drug ineffective [Unknown]
  - Cerebral vasoconstriction [Unknown]
  - Subarachnoid haemorrhage [Unknown]
  - Seizure [Unknown]
